FAERS Safety Report 19614310 (Version 2)
Quarter: 2021Q3

REPORT INFORMATION
  Report Type: Report from Study
  Country: FR (occurrence: FR)
  Receive Date: 20210727
  Receipt Date: 20210802
  Transmission Date: 20211014
  Serious: Yes (Other)
  Sender: FDA-Public Use
  Company Number: FR-SUN PHARMACEUTICAL INDUSTRIES LTD-2021RR-305798

PATIENT
  Age: 83 Year
  Sex: Female
  Weight: 53 kg

DRUGS (12)
  1. LOSARTAN. [Concomitant]
     Active Substance: LOSARTAN
     Indication: PRODUCT USED FOR UNKNOWN INDICATION
     Dosage: UNK
     Route: 065
  2. IBRANCE [Suspect]
     Active Substance: PALBOCICLIB
     Dosage: 100 MILLIGRAM, DAILY
     Route: 065
     Dates: start: 20191008, end: 20191028
  3. IBRANCE [Suspect]
     Active Substance: PALBOCICLIB
     Dosage: 75 MILLIGRAM, DAILY
     Route: 065
     Dates: start: 20200331, end: 20200420
  4. IBRANCE [Suspect]
     Active Substance: PALBOCICLIB
     Dosage: 75 MILLIGRAM, CYCLIC, 3 WEEKS ON/ 2 WEEKS OFF
     Route: 065
     Dates: start: 20200504
  5. IBRANCE [Suspect]
     Active Substance: PALBOCICLIB
     Dosage: 75 MILLIGRAM, DAILY
     Route: 065
     Dates: start: 20191217, end: 20200106
  6. LETROZOLE. [Suspect]
     Active Substance: LETROZOLE
     Indication: HORMONE THERAPY
     Dosage: 2.5 MILLIGRAM, DAILY
     Route: 048
     Dates: start: 20190729
  7. IBRANCE [Suspect]
     Active Substance: PALBOCICLIB
     Dosage: 75 MILLIGRAM, DAILY
     Route: 065
     Dates: start: 20191114, end: 20191204
  8. IBRANCE [Suspect]
     Active Substance: PALBOCICLIB
     Dosage: 75 MILLIGRAM, DAILY
     Route: 065
     Dates: start: 20200221, end: 20200312
  9. IBRANCE [Suspect]
     Active Substance: PALBOCICLIB
     Indication: BREAST CANCER
     Dosage: 100 MILLIGRAM, DAILY
     Route: 065
     Dates: start: 20190905, end: 20190925
  10. IBRANCE [Suspect]
     Active Substance: PALBOCICLIB
     Dosage: 125 MILLIGRAM, DAILY
     Route: 065
     Dates: start: 20190729, end: 20190818
  11. IBRANCE [Suspect]
     Active Substance: PALBOCICLIB
     Dosage: 75 MILLIGRAM, DAILY
     Route: 065
     Dates: start: 20200121, end: 20200210
  12. IBRANCE [Suspect]
     Active Substance: PALBOCICLIB
     Dosage: 75 MILLIGRAM, DAILY
     Route: 065
     Dates: start: 20200225, end: 20200316

REACTIONS (3)
  - Amnesia [Unknown]
  - Asthenia [Not Recovered/Not Resolved]
  - Neutropenia [Recovered/Resolved]

NARRATIVE: CASE EVENT DATE: 20190826
